FAERS Safety Report 10193440 (Version 1)
Quarter: 2014Q2

REPORT INFORMATION
  Report Type: Report from Study
  Country: BR (occurrence: BR)
  Receive Date: 20140524
  Receipt Date: 20140524
  Transmission Date: 20141212
  Serious: Yes (Other)
  Sender: FDA-Public Use
  Company Number: PHHY2014BR059298

PATIENT
  Sex: Female
  Weight: 76 kg

DRUGS (3)
  1. XOLAIR [Suspect]
     Indication: BRONCHITIS
     Dosage: UNK (01 AMP MONTHLY)
  2. XOLAIR [Suspect]
     Indication: ASTHMA
  3. METFORMIN [Suspect]
     Dosage: 2 DF, BID, DAILY

REACTIONS (8)
  - Blood glucose increased [Unknown]
  - Heart rate increased [Unknown]
  - Weight decreased [Unknown]
  - Vomiting [Unknown]
  - Dyspnoea [Unknown]
  - Hypotension [Unknown]
  - Dizziness [Unknown]
  - Nausea [Unknown]
